FAERS Safety Report 18013601 (Version 1)
Quarter: 2020Q3

REPORT INFORMATION
  Report Type: Report from Study
  Country: US (occurrence: US)
  Receive Date: 20200713
  Receipt Date: 20200713
  Transmission Date: 20201103
  Serious: Yes (Hospitalization, Other)
  Sender: FDA-Public Use
  Company Number: US-MYLANLABS-2020M1008219

PATIENT
  Sex: Male
  Weight: 79 kg

DRUGS (3)
  1. CLOZAPINE. [Suspect]
     Active Substance: CLOZAPINE
     Indication: SCHIZOPHRENIA
     Dosage: 3 DOSAGE FORM, QD
     Dates: end: 20200131
  2. TAXOL [Concomitant]
     Active Substance: PACLITAXEL
  3. KLONOPIN [Concomitant]
     Active Substance: CLONAZEPAM
     Dosage: UNK

REACTIONS (7)
  - Malaise [Recovered/Resolved]
  - Treatment noncompliance [Unknown]
  - Condition aggravated [Recovered/Resolved]
  - Product dose omission issue [Unknown]
  - Drug withdrawal syndrome [Recovered/Resolved]
  - Suicide attempt [Recovered/Resolved]
  - Catatonia [Recovered/Resolved]
